FAERS Safety Report 6388525-3 (Version None)
Quarter: 2009Q4

REPORT INFORMATION
  Report Type: 
  Country: None (occurrence: None)
  Receive Date: 20091005
  Receipt Date: 20091001
  Transmission Date: 20100525
  Serious: Yes (Other)
  Sender: FDA-Public Use
  Company Number: B0596148A

PATIENT
  Sex: Male

DRUGS (1)
  1. AUGMENTIN '125' [Suspect]
     Dosage: 1G TWICE PER DAY
     Route: 048
     Dates: start: 20090716, end: 20090812

REACTIONS (4)
  - CHOLESTATIC LIVER INJURY [None]
  - DECREASED APPETITE [None]
  - JAUNDICE [None]
  - PRURITUS [None]
